FAERS Safety Report 7909048-3 (Version None)
Quarter: 2011Q4

REPORT INFORMATION
  Report Type: 
  Country: None (occurrence: None)
  Receive Date: 20111111
  Receipt Date: 20110920
  Transmission Date: 20120403
  Serious: Yes (Hospitalization)
  Sender: FDA-Public Use
  Company Number: DE-ELI_LILLY_AND_COMPANY-DE201108006299

PATIENT
  Age: 62 Year
  Sex: Female
  Weight: 58 kg

DRUGS (5)
  1. CETUXIMAB [Suspect]
     Dosage: 417.5 MG/M2, UNK
     Dates: start: 20110712
  2. GEMCITABINE HYDROCHLORIDE [Suspect]
     Indication: NON-SMALL CELL LUNG CANCER
     Dosage: 1200 MG/M2, UNK
     Route: 042
     Dates: start: 20110704
  3. CARBOPLATIN [Suspect]
     Indication: NON-SMALL CELL LUNG CANCER
     Dosage: 525 MG/M2, UNK
     Route: 042
     Dates: start: 20110704
  4. CETUXIMAB [Suspect]
     Indication: NON-SMALL CELL LUNG CANCER
     Dosage: 400 MG/M2, UNK
     Route: 042
     Dates: start: 20110704
  5. GEMCITABINE HYDROCHLORIDE [Suspect]
     Dosage: 1995 MG/M2, UNK
     Dates: start: 20110712

REACTIONS (2)
  - THROMBOCYTOPENIA [None]
  - PETECHIAE [None]
